FAERS Safety Report 10487833 (Version 1)
Quarter: 2014Q4

REPORT INFORMATION
  Report Type: Spontaneous
  Country: US (occurrence: US)
  Receive Date: 20141001
  Receipt Date: 20141001
  Transmission Date: 20150528
  Serious: No
  Sender: FDA-Public Use
  Company Number: US-009507513-1407USA010100

PATIENT
  Sex: Male

DRUGS (1)
  1. DR. SCHOLL^S ONE STEP CORN REMOVERS [Suspect]
     Active Substance: SALICYLIC ACID
     Indication: HYPERKERATOSIS
     Dosage: UNK, UNKNOWN
     Route: 061
     Dates: start: 20140614

REACTIONS (3)
  - Erythema [Not Recovered/Not Resolved]
  - Tenderness [Not Recovered/Not Resolved]
  - Wound secretion [Not Recovered/Not Resolved]
